FAERS Safety Report 9034692 (Version 3)
Quarter: 2013Q4

REPORT INFORMATION
  Report Type: Spontaneous
  Country: FR (occurrence: FR)
  Receive Date: 20130128
  Receipt Date: 20131028
  Transmission Date: 20140711
  Serious: Yes (Other)
  Sender: FDA-Public Use
  Company Number: FR-VIIV HEALTHCARE LIMITED-B0858613A

PATIENT
  Sex: Female

DRUGS (8)
  1. KIVEXA [Suspect]
     Indication: HIV INFECTION
     Route: 048
  2. ALDACTONE [Suspect]
     Indication: HYPERTENSION
     Dosage: 75MG PER DAY
     Route: 048
  3. LUCENTIS [Suspect]
     Indication: AGE-RELATED MACULAR DEGENERATION
     Route: 031
  4. SUSTIVA [Suspect]
     Indication: HIV INFECTION
     Route: 048
  5. CARTEOL [Suspect]
     Indication: AGE-RELATED MACULAR DEGENERATION
     Route: 047
  6. TRAVATAN [Suspect]
     Indication: PRODUCT USED FOR UNKNOWN INDICATION
     Route: 047
  7. MONO-TILDIEM [Suspect]
     Indication: PRODUCT USED FOR UNKNOWN INDICATION
     Dosage: 300MG PER DAY
     Route: 048
  8. CRESTOR [Suspect]
     Indication: PRODUCT USED FOR UNKNOWN INDICATION
     Dosage: 5MG UNKNOWN
     Route: 048

REACTIONS (7)
  - Hypertrophic cardiomyopathy [Not Recovered/Not Resolved]
  - Aortic bruit [Unknown]
  - Aortic disorder [Unknown]
  - Arteriosclerosis [Unknown]
  - Arteriosclerosis Moenckeberg-type [Unknown]
  - Dyspnoea exertional [Unknown]
  - Cardiac murmur [Unknown]
